FAERS Safety Report 7801517-X (Version None)
Quarter: 2011Q4

REPORT INFORMATION
  Report Type: 
  Country: None (occurrence: None)
  Receive Date: 20111007
  Receipt Date: 20110927
  Transmission Date: 20120403
  Serious: Yes (Other)
  Sender: FDA-Public Use
  Company Number: US-JNJFOC-20110602101

PATIENT
  Sex: Female
  Weight: 63 kg

DRUGS (5)
  1. REMICADE [Suspect]
     Indication: CROHN'S DISEASE
     Route: 042
     Dates: start: 20110513
  2. HYDROCORTISONE [Concomitant]
     Indication: PREMEDICATION
     Dosage: AT 11:06 AM
     Route: 042
  3. REMICADE [Suspect]
     Route: 042
     Dates: start: 20110527
  4. ACETAMINOPHEN [Concomitant]
     Indication: PREMEDICATION
     Dosage: AT 10:43 AM
     Route: 048
  5. DIPHENHYDRAMINE HCL [Concomitant]
     Indication: PREMEDICATION
     Dosage: AT 10:43 AM
     Route: 048

REACTIONS (12)
  - FIBROMYALGIA [None]
  - ANXIETY [None]
  - ASTHENIA [None]
  - INFUSION RELATED REACTION [None]
  - CHEST DISCOMFORT [None]
  - FATIGUE [None]
  - TACHYCARDIA [None]
  - FEELING HOT [None]
  - PARAESTHESIA [None]
  - ERYTHEMA [None]
  - HYPERSENSITIVITY [None]
  - FLUSHING [None]
